FAERS Safety Report 4361733-9 (Version None)
Quarter: 2004Q2

REPORT INFORMATION
  Report Type: 
  Country: None (occurrence: None)
  Receive Date: 20040521
  Receipt Date: 20040303
  Transmission Date: 20050107
  Serious: No
  Sender: FDA-Public Use
  Company Number: US-GLAXOSMITHKLINE-A0501057A

PATIENT
  Age: 29 Year
  Sex: Male

DRUGS (3)
  1. WELLBUTRIN XL [Suspect]
     Indication: PAIN
     Dosage: 150MG PER DAY
     Route: 048
     Dates: start: 20040101
  2. VICODIN [Concomitant]
  3. SOMA [Concomitant]

REACTIONS (1)
  - AGITATION [None]
